FAERS Safety Report 5728505-1 (Version None)
Quarter: 2008Q2

REPORT INFORMATION
  Report Type: 
  Country: None (occurrence: None)
  Receive Date: 20080502
  Receipt Date: 20080502
  Transmission Date: 20081010
  Serious: No
  Sender: FDA-Public Use
  Company Number: None

PATIENT
  Age: 58 Year
  Sex: Male
  Weight: 71.2147 kg

DRUGS (1)
  1. XALACOM   PFIZER CANADA INC [Suspect]
     Indication: OCULAR HYPERTENSION
     Dosage: 1 DROP PER EYE DAILY OPHTHALMIC
     Route: 047
     Dates: start: 20080103, end: 20080120

REACTIONS (2)
  - DIPLOPIA [None]
  - MYASTHENIA GRAVIS [None]
